FAERS Safety Report 13929913 (Version 14)
Quarter: 2022Q3

REPORT INFORMATION
  Report Type: Spontaneous
  Country: FR (occurrence: FR)
  Receive Date: 20170901
  Receipt Date: 20220707
  Transmission Date: 20221026
  Serious: Yes (Death, Hospitalization, Disabling, Other)
  Sender: FDA-Public Use
  Company Number: FR-PFIZER INC-2016333196

PATIENT
  Age: 51 Year
  Sex: Male
  Weight: 120 kg

DRUGS (12)
  1. TAHOR [Suspect]
     Active Substance: ATORVASTATIN CALCIUM
     Indication: Hypercholesterolaemia
     Dosage: 10 MG, DAILY
     Route: 048
     Dates: start: 200710, end: 200801
  2. TAHOR [Suspect]
     Active Substance: ATORVASTATIN CALCIUM
     Dosage: 20 MG, DAILY
     Route: 048
     Dates: start: 200801, end: 200905
  3. TAHOR [Suspect]
     Active Substance: ATORVASTATIN CALCIUM
     Dosage: 40 MG, DAILY
     Route: 048
     Dates: start: 200909, end: 201109
  4. TAHOR [Suspect]
     Active Substance: ATORVASTATIN CALCIUM
     Dosage: UNK
     Dates: end: 201111
  5. AVANDAMET [Concomitant]
     Active Substance: METFORMIN HYDROCHLORIDE\ROSIGLITAZONE MALEATE
     Dosage: 1 DF, 2X/DAY
     Dates: start: 20071008
  6. BENFLUOREX HYDROCHLORIDE [Concomitant]
     Active Substance: BENFLUOREX HYDROCHLORIDE
     Dosage: UNK
     Dates: start: 200711, end: 200911
  7. METFORMIN HYDROCHLORIDE [Concomitant]
     Active Substance: METFORMIN HYDROCHLORIDE
     Dosage: 850 MG, 3X/DAY
     Route: 048
     Dates: start: 20080529
  8. BENFLUOREX [Concomitant]
     Active Substance: BENFLUOREX
     Dosage: 150 MG, 2X/DAY
     Dates: start: 20081124
  9. GLICLAZIDE [Concomitant]
     Active Substance: GLICLAZIDE
     Dosage: 60 MG, 1X/DAY
     Route: 048
     Dates: start: 20090505
  10. JANUVIA [Concomitant]
     Active Substance: SITAGLIPTIN PHOSPHATE
     Dosage: 100 MG, 1X/DAY
     Dates: start: 20090917
  11. LANTUS SOLOSTAR [Concomitant]
     Active Substance: INSULIN GLARGINE
     Indication: Diabetes mellitus management
     Dosage: 48 IU, 1X/DAY
     Dates: start: 20100108
  12. LANTUS SOLOSTAR [Concomitant]
     Active Substance: INSULIN GLARGINE
     Dosage: 50 IU, 1X/DAY
     Dates: start: 20100930

REACTIONS (17)
  - Necrotising myositis [Fatal]
  - Paraparesis [Not Recovered/Not Resolved]
  - Fall [Unknown]
  - Femur fracture [Unknown]
  - General physical health deterioration [Not Recovered/Not Resolved]
  - Hypercapnic coma [Unknown]
  - Acute respiratory failure [Unknown]
  - Lung disorder [Unknown]
  - Sciatica [Unknown]
  - Gait disturbance [Recovering/Resolving]
  - Hyperhidrosis [Not Recovered/Not Resolved]
  - Anxiety [Not Recovered/Not Resolved]
  - Fatigue [Not Recovered/Not Resolved]
  - Somnolence [Unknown]
  - Speech disorder [Unknown]
  - Respiratory disorder [Unknown]
  - Urinary incontinence [Unknown]

NARRATIVE: CASE EVENT DATE: 20121101
